FAERS Safety Report 4310407-9 (Version None)
Quarter: 2004Q1

REPORT INFORMATION
  Report Type: 
  Country: None (occurrence: None)
  Receive Date: 20040303
  Receipt Date: 20040107
  Transmission Date: 20041129
  Serious: Yes (Hospitalization)
  Sender: FDA-Public Use
  Company Number: PHFR2004IE00518

PATIENT
  Age: 29 Year
  Sex: Male

DRUGS (3)
  1. CLOZARIL [Suspect]
     Indication: SCHIZOPHRENIA
     Dosage: UNK, UNK
     Route: 048
     Dates: start: 20020422
  2. CLOZARIL [Suspect]
     Dosage: 400MG OVERDOSE - TREATMENT BREAK
     Route: 048
  3. CLOZARIL [Suspect]
     Dosage: 300 MG, BID
     Route: 048

REACTIONS (3)
  - DIZZINESS [None]
  - MEDICATION ERROR [None]
  - SOMNOLENCE [None]
